FAERS Safety Report 15014508 (Version 1)
Quarter: 2018Q2

REPORT INFORMATION
  Report Type: Report from Study
  Country: FR (occurrence: FR)
  Receive Date: 20180615
  Receipt Date: 20180615
  Transmission Date: 20180711
  Serious: Yes (Hospitalization)
  Sender: FDA-Public Use
  Company Number: FR-ROCHE-2138366

PATIENT
  Age: 71 Year
  Sex: Male
  Weight: 66 kg

DRUGS (4)
  1. RITUXIMAB. [Suspect]
     Active Substance: RITUXIMAB
     Indication: WALDENSTROM^S MACROGLOBULINAEMIA
     Route: 042
     Dates: start: 20180409
  2. CYCLOPHOSPHAMIDE. [Suspect]
     Active Substance: CYCLOPHOSPHAMIDE
     Indication: WALDENSTROM^S MACROGLOBULINAEMIA
     Dosage: INITIAL DOSE OF CYCLOPHOSPHAMIDE 100 MG/M2 X 2;  ABSOLUTE DAILY DOSE OF CYCLOPHOSPHAMIDE ON DAY 1-5
     Route: 048
     Dates: start: 20180409
  3. RITUXIMAB. [Suspect]
     Active Substance: RITUXIMAB
     Indication: WALDENSTROM^S MACROGLOBULINAEMIA
     Dosage: DOSE OF RITUXIMAB BEFORE SAE ONSET 1400 MG. DATE OF LAST DOSE OF RITUXIMAB 04/JUN/2018.
     Route: 058
     Dates: start: 20180507
  4. DEXAMETHASONE. [Suspect]
     Active Substance: DEXAMETHASONE
     Indication: WALDENSTROM^S MACROGLOBULINAEMIA
     Dosage: DATE OF LAST DOSE OF DEXAMETHASONE 04/JUN/2018
     Route: 048
     Dates: start: 20180409

REACTIONS (1)
  - Arthritis [Recovering/Resolving]

NARRATIVE: CASE EVENT DATE: 20180606
